FAERS Safety Report 23454389 (Version 1)
Quarter: 2024Q1

REPORT INFORMATION
  Report Type: Spontaneous
  Country: US (occurrence: US)
  Receive Date: 20240130
  Receipt Date: 20240130
  Transmission Date: 20240410
  Serious: Yes (Other)
  Sender: FDA-Public Use
  Company Number: US-ALEMBIC PHARMACUETICALS LIMITED-2024SCAL000047

PATIENT

DRUGS (2)
  1. TESTOSTERONE [Suspect]
     Active Substance: TESTOSTERONE
     Indication: Transgender hormonal therapy
     Dosage: UNK
     Route: 065
     Dates: start: 2015
  2. FINASTERIDE [Concomitant]
     Active Substance: FINASTERIDE
     Indication: Transgender hormonal therapy
     Dosage: UNK
     Route: 065
     Dates: start: 2015

REACTIONS (2)
  - Endometrial cancer [Unknown]
  - Vaginal discharge [Unknown]

NARRATIVE: CASE EVENT DATE: 20220101
